FAERS Safety Report 12966544 (Version 1)
Quarter: 2016Q4

REPORT INFORMATION
  Report Type: Report from Study
  Country: GB (occurrence: GB)
  Receive Date: 20161122
  Receipt Date: 20161122
  Transmission Date: 20170207
  Serious: Yes (Death, Other)
  Sender: FDA-Public Use
  Company Number: GB-ALEXION-A201500206

PATIENT
  Age: 70 Year
  Sex: Male
  Weight: 70 kg

DRUGS (9)
  1. CARBOCISTEINE [Concomitant]
     Active Substance: CARBOCYSTEINE
     Indication: PRODUCTIVE COUGH
  2. GABAPENTIN. [Concomitant]
     Active Substance: GABAPENTIN
     Indication: PAIN
     Dosage: 300 MG, QD
     Route: 048
     Dates: start: 20140104, end: 20150108
  3. BISOPROLOL [Concomitant]
     Active Substance: BISOPROLOL
     Indication: ATRIAL FIBRILLATION
     Dosage: 2.5 MG, QD
     Route: 048
     Dates: start: 20141017, end: 20150708
  4. ECULIZUMAB [Suspect]
     Active Substance: ECULIZUMAB
     Indication: GUILLAIN-BARRE SYNDROME
     Dosage: 900 MG, QW
     Route: 042
     Dates: start: 20140829, end: 20140905
  5. FLUOXETINE [Concomitant]
     Active Substance: FLUOXETINE HYDROCHLORIDE
     Indication: DEPRESSED MOOD
     Dosage: 20 MG, QD
     Route: 048
     Dates: start: 20140102, end: 20150108
  6. LACTULOSE. [Concomitant]
     Active Substance: LACTULOSE
     Indication: FUNCTIONAL GASTROINTESTINAL DISORDER
     Dosage: 10 ML, BID
     Route: 048
     Dates: start: 20141127, end: 20150108
  7. LANSOPRAZOLE. [Concomitant]
     Active Substance: LANSOPRAZOLE
     Indication: PROPHYLAXIS
     Dosage: 30 MG, QD
     Route: 048
     Dates: start: 20140917
  8. CARBOCISTEINE [Concomitant]
     Active Substance: CARBOCYSTEINE
     Indication: COUGH
     Dosage: 750 MG, QHS
     Route: 048
     Dates: start: 20140108, end: 20150108
  9. ENOXAPARIN [Concomitant]
     Active Substance: ENOXAPARIN
     Indication: PROPHYLAXIS
     Dosage: 40 MG, QD
     Route: 058
     Dates: start: 20140828, end: 20150108

REACTIONS (3)
  - Multiple organ dysfunction syndrome [Fatal]
  - Sepsis [Fatal]
  - Autonomic nervous system imbalance [Unknown]

NARRATIVE: CASE EVENT DATE: 20141228
